FAERS Safety Report 10868628 (Version 1)
Quarter: 2015Q1

REPORT INFORMATION
  Report Type: Spontaneous
  Country: US (occurrence: US)
  Receive Date: 20150225
  Receipt Date: 20150225
  Transmission Date: 20150721
  Serious: Yes (Hospitalization, Other)
  Sender: FDA-Public Use
  Company Number: US-PFIZER INC-2015065190

PATIENT
  Age: 41 Year
  Sex: Male

DRUGS (3)
  1. METHYLENEDIOXYMETHAMPHETAMINE [Interacting]
     Active Substance: METHYLENEDIOXYMETHAMPHETAMINE
     Dosage: UNK
  2. DESVENLAFAXINE SUCCINATE MONOHYDRATE [Suspect]
     Active Substance: DESVENLAFAXINE
     Dosage: UNK
  3. RISPERIDONE. [Suspect]
     Active Substance: RISPERIDONE
     Dosage: UNK

REACTIONS (4)
  - Drug interaction [Unknown]
  - Serotonin syndrome [Recovering/Resolving]
  - Rhabdomyolysis [Unknown]
  - Acute kidney injury [Recovering/Resolving]
